FAERS Safety Report 8957557 (Version 1)
Quarter: 2012Q4

REPORT INFORMATION
  Report Type: 
  Country: US (occurrence: US)
  Receive Date: 20121210
  Receipt Date: 20121210
  Transmission Date: 20130627
  Serious: Yes (Hospitalization)
  Sender: FDA-Public Use
  Company Number: US-GILEAD-2012-0058836

PATIENT
  Sex: Female

DRUGS (4)
  1. LETAIRIS [Suspect]
     Indication: PULMONARY ARTERIAL HYPERTENSION
     Dosage: 10 mg, QD
     Route: 048
     Dates: start: 20100622
  2. LETAIRIS [Suspect]
     Indication: SUBSTANCE USE
  3. LETAIRIS [Suspect]
     Indication: SUBSTANCE USE
  4. REVATIO [Concomitant]

REACTIONS (1)
  - Pneumonia [Unknown]
